FAERS Safety Report 7473781-0 (Version None)
Quarter: 2011Q2

REPORT INFORMATION
  Report Type: 
  Country: None (occurrence: None)
  Receive Date: 20110511
  Receipt Date: 20110502
  Transmission Date: 20111010
  Serious: Yes (Other)
  Sender: FDA-Public Use
  Company Number: US-CEPHALON-2011002182

PATIENT
  Age: 65 Year
  Sex: Female

DRUGS (4)
  1. OXYCONTIN [Concomitant]
  2. ACTIQ [Suspect]
     Indication: PAIN
     Route: 002
  3. MYLAN [Concomitant]
  4. BENZODIAZEPINE [Concomitant]

REACTIONS (4)
  - DRUG DEPENDENCE [None]
  - LOSS OF CONSCIOUSNESS [None]
  - DRUG ABUSE [None]
  - SOMNOLENCE [None]
